FAERS Safety Report 12578442 (Version 1)
Quarter: 2016Q3

REPORT INFORMATION
  Report Type: Other
  Country: SE (occurrence: SE)
  Receive Date: 20160721
  Receipt Date: 20160721
  Transmission Date: 20161109
  Serious: Yes (Hospitalization)
  Sender: FDA-Public Use
  Company Number: SE-NOVEL LABORATORIES, INC-2016-03162

PATIENT
  Age: 28 Year
  Sex: Male

DRUGS (4)
  1. FLUDIAZEPAM [Suspect]
     Active Substance: FLUDIAZEPAM
     Indication: PRODUCT USED FOR UNKNOWN INDICATION
     Route: 065
  2. OXYCODONE [Suspect]
     Active Substance: OXYCODONE
     Indication: PRODUCT USED FOR UNKNOWN INDICATION
     Route: 065
  3. PREGABALIN. [Suspect]
     Active Substance: PREGABALIN
     Indication: PRODUCT USED FOR UNKNOWN INDICATION
     Route: 065
  4. FLUBROMAZOLAM [Concomitant]
     Active Substance: FLUBROMAZOLAM
     Indication: PRODUCT USED FOR UNKNOWN INDICATION
     Route: 065

REACTIONS (8)
  - Confusional state [Unknown]
  - Somnolence [Unknown]
  - Hyperthermia [Unknown]
  - Blood pressure decreased [Unknown]
  - Toxicity to various agents [Unknown]
  - Apnoea [Unknown]
  - Heart rate increased [Unknown]
  - C-reactive protein increased [Unknown]
